FAERS Safety Report 11201352 (Version 1)
Quarter: 2015Q2

REPORT INFORMATION
  Report Type: Spontaneous
  Country: None (occurrence: None)
  Receive Date: 20150618
  Receipt Date: 20150618
  Transmission Date: 20150821
  Serious: Yes (Death)
  Sender: FDA-Public Use
  Company Number: None

PATIENT
  Age: 62 Year
  Sex: Male
  Weight: 78.9 kg

DRUGS (1)
  1. INFLIXIMAB [Suspect]
     Active Substance: INFLIXIMAB

REACTIONS (11)
  - Abdominal pain [None]
  - Sinus tachycardia [None]
  - Chest pain [None]
  - Haemoglobin decreased [None]
  - Cardio-respiratory arrest [None]
  - Hypokalaemia [None]
  - Haematochezia [None]
  - Neutropenia [None]
  - Vomiting [None]
  - Hypotension [None]
  - Sepsis [None]

NARRATIVE: CASE EVENT DATE: 20100417
